FAERS Safety Report 7978685-2 (Version None)
Quarter: 2011Q4

REPORT INFORMATION
  Report Type: 
  Country: None (occurrence: None)
  Receive Date: 20111214
  Receipt Date: 20111206
  Transmission Date: 20120403
  Serious: Yes (Hospitalization)
  Sender: FDA-Public Use
  Company Number: JP-AMGEN-JPNCT2011063237

PATIENT
  Age: 70 Year
  Sex: Male
  Weight: 66 kg

DRUGS (12)
  1. AMARYL [Concomitant]
     Indication: DIABETES MELLITUS
     Dosage: AFTER MORNING, SUPPER
     Route: 048
     Dates: start: 20091215
  2. DICLOD [Concomitant]
     Indication: CATARACT
     Dosage: FOUR DROPS OF BOTH EYES
     Route: 047
     Dates: start: 20110324
  3. KARY UNI [Concomitant]
     Indication: CATARACT
     Dosage: FOUR DROPS OF RIGHT EYE
     Route: 047
     Dates: start: 20100413
  4. METHOTREXATE [Concomitant]
     Indication: RHEUMATOID ARTHRITIS
     Dosage: 10MG/WEEK
     Route: 048
     Dates: start: 20110909
  5. BLINDED DENOSUMAB [Suspect]
     Indication: RHEUMATOID ARTHRITIS
     Route: 058
     Dates: start: 20110806
  6. FOLIC ACID [Concomitant]
     Indication: ADVERSE REACTION
     Dosage: 5 MG, QWK
     Route: 048
     Dates: start: 20111118
  7. FOLIC ACID [Concomitant]
     Indication: PROPHYLAXIS
  8. LEVOFLOXACIN [Concomitant]
     Indication: CATARACT
     Dosage: FOUR DROPS OF BOTH EYES
     Route: 047
     Dates: start: 20110324
  9. METFORMIN HCL [Concomitant]
     Indication: DIABETES MELLITUS
     Dosage: AFTER EVERY MEAL
     Route: 048
     Dates: start: 20091215
  10. RINBETA PF [Concomitant]
     Indication: CATARACT
     Dosage: FOUR DROPS OF BOTH EYES
     Route: 047
     Dates: start: 20110324
  11. CALCICHEW D3 [Concomitant]
     Indication: PRODUCT USED FOR UNKNOWN INDICATION
     Dosage: 2 DF, QD
     Route: 048
     Dates: start: 20110806
  12. PLACEBO [Suspect]
     Indication: RHEUMATOID ARTHRITIS
     Route: 058
     Dates: start: 20110806

REACTIONS (1)
  - THROMBOTIC CEREBRAL INFARCTION [None]
